FAERS Safety Report 5980002-4 (Version None)
Quarter: 2008Q4

REPORT INFORMATION
  Report Type: 
  Country: None (occurrence: None)
  Receive Date: 20081126
  Receipt Date: 20081117
  Transmission Date: 20090506
  Serious: Yes (Other)
  Sender: FDA-Public Use
  Company Number: ADE2008-0380

PATIENT
  Age: 63 Year
  Sex: Female

DRUGS (7)
  1. GABAPENTIN [Suspect]
  2. TAMOXIFEN [Suspect]
     Indication: BREAST CANCER
  3. METHIMAZOLE [Suspect]
     Indication: TOXIC NODULAR GOITRE
  4. ANASTROZOLE [Suspect]
     Indication: BREAST CANCER
  5. LETRAZOLE [Suspect]
     Indication: BREAST CANCER
  6. TRASTUZUMAB [Suspect]
     Indication: BREAST CANCER
  7. FULVESTRANT [Suspect]
     Indication: BREAST CANCER

REACTIONS (15)
  - ARTHRALGIA [None]
  - BURNING SENSATION [None]
  - CONNECTIVE TISSUE DISORDER [None]
  - CUTANEOUS VASCULITIS [None]
  - DRUG ERUPTION [None]
  - INDURATION [None]
  - PAIN [None]
  - PURPURA [None]
  - RASH [None]
  - RASH ERYTHEMATOUS [None]
  - SKIN DISORDER [None]
  - SKIN LESION [None]
  - SKIN ULCER [None]
  - TOXIC NODULAR GOITRE [None]
  - WOUND SECRETION [None]
